FAERS Safety Report 12340532 (Version 1)
Quarter: 2016Q2

REPORT INFORMATION
  Report Type: Report from Study
  Country: CA (occurrence: CA)
  Receive Date: 20160506
  Receipt Date: 20160506
  Transmission Date: 20160815
  Serious: Yes (Death)
  Sender: FDA-Public Use
  Company Number: CA-BEH-2016062350

PATIENT
  Age: 62 Year
  Sex: Male

DRUGS (2)
  1. HIZENTRA [Suspect]
     Active Substance: HUMAN IMMUNOGLOBULIN G
     Indication: SECONDARY IMMUNODEFICIENCY
     Dosage: STOP DATE: ??-JAN-2016
     Route: 058
     Dates: start: 20150427
  2. HIZENTRA [Suspect]
     Active Substance: HUMAN IMMUNOGLOBULIN G
     Indication: CHRONIC LYMPHOCYTIC LEUKAEMIA
     Dosage: STOP DATE: ??-JAN-2016
     Route: 058
     Dates: start: 20150427

REACTIONS (1)
  - Death [Fatal]

NARRATIVE: CASE EVENT DATE: 20160409
